FAERS Safety Report 10339800 (Version 1)
Quarter: 2014Q3

REPORT INFORMATION
  Report Type: Spontaneous
  Country: US (occurrence: None)
  Receive Date: 20140723
  Receipt Date: 20140723
  Transmission Date: 20150326
  Serious: No
  Sender: FDA-Public Use
  Company Number: None

PATIENT
  Age: 39 Year
  Sex: Female
  Weight: 104.33 kg

DRUGS (1)
  1. MIRVASO [Suspect]
     Active Substance: BRIMONIDINE TARTRATE
     Indication: ROSACEA
     Dosage: 1 PEA SIZE AMOUNT TO 5 AREAS ONCE DAILY APPLIED TO A SURFACE, USUALLY THE SKIN
     Dates: start: 20140717, end: 20140720

REACTIONS (3)
  - Flushing [None]
  - Skin warm [None]
  - Erythema [None]

NARRATIVE: CASE EVENT DATE: 20140722
